FAERS Safety Report 21075641 (Version 1)
Quarter: 2022Q3

REPORT INFORMATION
  Report Type: Spontaneous
  Country: US (occurrence: None)
  Receive Date: 20220712
  Receipt Date: 20220712
  Transmission Date: 20221027
  Serious: Yes (Death)
  Sender: FDA-Public Use
  Company Number: None

PATIENT
  Age: 77 Year
  Sex: Female

DRUGS (1)
  1. ENOXAPARIN [Suspect]
     Active Substance: ENOXAPARIN

REACTIONS (10)
  - Syncope [None]
  - Anaemia [None]
  - Ecchymosis [None]
  - Abdominal tenderness [None]
  - Abdominal wall haematoma [None]
  - Anuria [None]
  - Ureteric compression [None]
  - Acute kidney injury [None]
  - Haemofiltration [None]
  - Renal impairment [None]

NARRATIVE: CASE EVENT DATE: 20211230
